FAERS Safety Report 12818278 (Version 1)
Quarter: 2016Q4

REPORT INFORMATION
  Report Type: Spontaneous
  Country: US (occurrence: US)
  Receive Date: 20161006
  Receipt Date: 20161006
  Transmission Date: 20170207
  Serious: No
  Sender: FDA-Public Use
  Company Number: US-PFIZER INC-2016463227

PATIENT
  Age: 44 Year
  Sex: Female

DRUGS (6)
  1. SPIRONOLACTONE. [Suspect]
     Active Substance: SPIRONOLACTONE
     Dosage: UNK
  2. VITAMIN B12 [Suspect]
     Active Substance: CYANOCOBALAMIN
     Dosage: UNK
  3. SIMVASTATIN. [Suspect]
     Active Substance: SIMVASTATIN
     Dosage: UNK
  4. ZANAFLEX [Suspect]
     Active Substance: TIZANIDINE HYDROCHLORIDE
     Dosage: UNK
  5. GABAPENTIN. [Suspect]
     Active Substance: GABAPENTIN
     Dosage: UNK
  6. LASIX [Suspect]
     Active Substance: FUROSEMIDE
     Dosage: UNK

REACTIONS (1)
  - Drug hypersensitivity [Unknown]
